FAERS Safety Report 16539086 (Version 2)
Quarter: 2019Q3

REPORT INFORMATION
  Report Type: Report from Study
  Country: JP (occurrence: JP)
  Receive Date: 20190708
  Receipt Date: 20190910
  Transmission Date: 20191004
  Serious: Yes (Death)
  Sender: FDA-Public Use
  Company Number: PHJP2019JP001739

PATIENT
  Age: 31 Year
  Sex: Female
  Weight: 43.9 kg

DRUGS (22)
  1. TACROLIMUS. [Concomitant]
     Active Substance: TACROLIMUS
     Dosage: 0.6 MG, UNK
     Route: 048
     Dates: start: 20180906, end: 20180912
  2. CELLCEPT [Concomitant]
     Active Substance: MYCOPHENOLATE MOFETIL\MYCOPHENOLATE MOFETIL HYDROCHLORIDE
     Dosage: 500 MG, UNK
     Route: 048
     Dates: start: 20180913
  3. CERTICAN [Suspect]
     Active Substance: EVEROLIMUS
     Dosage: 1.5 MG, QD
     Route: 048
     Dates: start: 20180802, end: 20180829
  4. TACROLIMUS. [Concomitant]
     Active Substance: TACROLIMUS
     Dosage: 3.0 MG, UNK
     Route: 048
     Dates: start: 20180509, end: 20180603
  5. TACROLIMUS. [Concomitant]
     Active Substance: TACROLIMUS
     Dosage: 2.0 MG, UNK
     Route: 048
     Dates: start: 20180913
  6. CERTICAN [Suspect]
     Active Substance: EVEROLIMUS
     Indication: LIVER TRANSPLANT
     Dosage: 0.5 MG, QD
     Route: 048
     Dates: start: 20180719, end: 20180725
  7. CERTICAN [Suspect]
     Active Substance: EVEROLIMUS
     Indication: PROPHYLAXIS AGAINST TRANSPLANT REJECTION
     Dosage: 1 MG, QD
     Route: 048
     Dates: start: 20180726, end: 20180801
  8. CERTICAN [Suspect]
     Active Substance: EVEROLIMUS
     Dosage: 1.75 MG, QD
     Route: 048
     Dates: start: 20180830, end: 20181023
  9. FLORID [Concomitant]
     Active Substance: MICONAZOLE
     Indication: PROPHYLAXIS
     Dosage: UNK
     Route: 048
     Dates: end: 20180909
  10. PREDONINE [Concomitant]
     Active Substance: PREDNISOLONE
     Indication: PROPHYLAXIS
     Dosage: UNK
     Route: 048
     Dates: end: 20181024
  11. TACROLIMUS. [Concomitant]
     Active Substance: TACROLIMUS
     Indication: PRODUCT USED FOR UNKNOWN INDICATION
     Dosage: 3.2 MG, UNK
     Route: 048
     Dates: start: 20171122, end: 20180508
  12. ARGAMATE [Concomitant]
     Active Substance: CALCIUM POLYSTYRENE SULFONATE
     Indication: PROPHYLAXIS
     Dosage: UNK
     Route: 048
     Dates: end: 20180905
  13. TACROLIMUS. [Concomitant]
     Active Substance: TACROLIMUS
     Dosage: 2.8 MG, UNK
     Route: 048
     Dates: start: 20180604, end: 20180822
  14. TACROLIMUS. [Concomitant]
     Active Substance: TACROLIMUS
     Dosage: 2.0 MG, UNK
     Route: 048
     Dates: start: 20180905, end: 20180905
  15. CELLCEPT [Concomitant]
     Active Substance: MYCOPHENOLATE MOFETIL\MYCOPHENOLATE MOFETIL HYDROCHLORIDE
     Indication: PRODUCT USED FOR UNKNOWN INDICATION
     Dosage: 1000 MG, UNK
     Route: 048
     Dates: start: 20171122, end: 20180912
  16. URSO [Concomitant]
     Active Substance: URSODIOL
     Indication: PROPHYLAXIS
     Dosage: UNK
     Route: 048
     Dates: end: 20181016
  17. BIO-THREE [Concomitant]
     Active Substance: HERBALS
     Indication: PROPHYLAXIS
     Dosage: UNK
     Route: 048
     Dates: end: 20181016
  18. GASMOTIN [Concomitant]
     Active Substance: MOSAPRIDE CITRATE
     Indication: PROPHYLAXIS
     Dosage: UNK
     Route: 048
     Dates: start: 20180903, end: 20180920
  19. NALDEMEDINE [Concomitant]
     Active Substance: NALDEMEDINE
     Indication: PROPHYLAXIS
     Dosage: UNK
     Route: 048
     Dates: start: 20180914, end: 20180930
  20. DAIKENCHUTO [Concomitant]
     Active Substance: HERBALS
     Indication: PROPHYLAXIS
     Dosage: UNK
     Route: 048
     Dates: start: 20180903, end: 20180920
  21. CERTICAN [Suspect]
     Active Substance: EVEROLIMUS
     Dosage: 1 MG, QD
     Route: 048
     Dates: start: 20181024
  22. TACROLIMUS. [Concomitant]
     Active Substance: TACROLIMUS
     Dosage: 2.4 MG, UNK
     Route: 048
     Dates: start: 20180823, end: 20180904

REACTIONS (4)
  - Cancer pain [Fatal]
  - Adenocarcinoma [Fatal]
  - Lymphadenopathy [Fatal]
  - Inflammation [Fatal]

NARRATIVE: CASE EVENT DATE: 20180901
